FAERS Safety Report 12959254 (Version 1)
Quarter: 2016Q4

REPORT INFORMATION
  Report Type: Spontaneous
  Country: US (occurrence: US)
  Receive Date: 20161118
  Receipt Date: 20161118
  Transmission Date: 20170207
  Serious: Yes (Death)
  Sender: FDA-Public Use
  Company Number: None

PATIENT
  Age: 72 Year
  Sex: Female
  Weight: 72.75 kg

DRUGS (2)
  1. CARBOPLATIN. [Suspect]
     Active Substance: CARBOPLATIN
     Dates: end: 20140128
  2. TAXOL [Suspect]
     Active Substance: PACLITAXEL
     Dates: end: 20160315

REACTIONS (4)
  - Fall [None]
  - Acute kidney injury [None]
  - Hypercalcaemia [None]
  - Back pain [None]

NARRATIVE: CASE EVENT DATE: 20161108
